FAERS Safety Report 11128894 (Version 1)
Quarter: 2015Q2

REPORT INFORMATION
  Report Type: Report from Study
  Country: IT (occurrence: IT)
  Receive Date: 20150521
  Receipt Date: 20150521
  Transmission Date: 20150821
  Serious: Yes (Death)
  Sender: FDA-Public Use
  Company Number: IT-INTERMUNE, INC.-201504IM013891

PATIENT
  Age: 77 Year
  Sex: Male

DRUGS (6)
  1. ESBRIET [Suspect]
     Active Substance: PIRFENIDONE
     Dosage: 2403 MG
     Route: 048
     Dates: end: 20150413
  2. MICARDIS [Concomitant]
     Active Substance: TELMISARTAN
     Dosage: 80 MG
  3. NOVONORM [Concomitant]
     Active Substance: REPAGLINIDE
     Dosage: 3 MG
     Route: 048
  4. CARDIOASPIRIN [Concomitant]
     Active Substance: ASPIRIN
     Dosage: 100 MG
  5. ESBRIET [Suspect]
     Active Substance: PIRFENIDONE
     Indication: IDIOPATHIC PULMONARY FIBROSIS
     Route: 048
     Dates: start: 20150216
  6. MEPRAL [Concomitant]
     Active Substance: OMEPRAZOLE SODIUM
     Dosage: 20 MG
     Route: 048

REACTIONS (4)
  - Asthenia [Unknown]
  - Condition aggravated [Fatal]
  - Gamma-glutamyltransferase increased [Unknown]
  - Syncope [Recovered/Resolved]

NARRATIVE: CASE EVENT DATE: 20150410
